FAERS Safety Report 19909721 (Version 1)
Quarter: 2021Q4

REPORT INFORMATION
  Report Type: Spontaneous
  Country: DE (occurrence: DE)
  Receive Date: 20211002
  Receipt Date: 20211002
  Transmission Date: 20220304
  Serious: Yes (Death)
  Sender: FDA-Public Use
  Company Number: DE-DCGMA-21189122

PATIENT
  Age: 5 Day
  Sex: Male

DRUGS (6)
  1. PYRIDOXINE HYDROCHLORIDE [Suspect]
     Active Substance: PYRIDOXINE HYDROCHLORIDE
     Indication: Neonatal epileptic seizure
     Dosage: 200 MILLIGRAM DAILY; 2 SEPARATED DOSES
     Route: 042
     Dates: start: 20210105
  2. LEVETIRACETAM [Suspect]
     Active Substance: LEVETIRACETAM
     Indication: Neonatal epileptic seizure
     Dosage: ADDITIONAL INFO : 25 MG-100 MG
     Route: 042
     Dates: start: 20210105, end: 20210108
  3. PHENOBARBITAL [Suspect]
     Active Substance: PHENOBARBITAL
     Indication: Neonatal epileptic seizure
     Dosage: ADDITIONAL INFO : 13-25 MG
     Route: 042
     Dates: start: 20210105, end: 20210108
  4. VALPROATE SODIUM [Concomitant]
     Active Substance: VALPROATE SODIUM
     Indication: Neonatal epileptic seizure
     Dosage: 80 MG
     Route: 042
     Dates: start: 20210108
  5. CHLORAL HYDRATE [Concomitant]
     Active Substance: CHLORAL HYDRATE
     Indication: Sedation
     Dosage: 130 MG
     Route: 042
  6. DIAZEPAM [Concomitant]
     Active Substance: DIAZEPAM
     Indication: Sedation
     Dosage: 0.8 MG
     Route: 042

REACTIONS (1)
  - Necrotising enterocolitis neonatal [Fatal]

NARRATIVE: CASE EVENT DATE: 20210109
